FAERS Safety Report 24841526 (Version 1)
Quarter: 2025Q1

REPORT INFORMATION
  Report Type: Spontaneous
  Country: US (occurrence: US)
  Receive Date: 20250114
  Receipt Date: 20250114
  Transmission Date: 20250409
  Serious: No
  Sender: PFIZER
  Company Number: US-PFIZER INC-202500007946

PATIENT
  Sex: Female

DRUGS (4)
  1. CIBINQO [Suspect]
     Active Substance: ABROCITINIB
  2. DUPILUMAB [Suspect]
     Active Substance: DUPILUMAB
  3. TRALOKINUMAB [Suspect]
     Active Substance: TRALOKINUMAB
  4. UPADACITINIB [Suspect]
     Active Substance: UPADACITINIB

REACTIONS (1)
  - Drug ineffective [Unknown]
